FAERS Safety Report 23480341 (Version 1)
Quarter: 2024Q1

REPORT INFORMATION
  Report Type: Spontaneous
  Country: GB (occurrence: GB)
  Receive Date: 20240205
  Receipt Date: 20240205
  Transmission Date: 20240410
  Serious: No
  Sender: FDA-Public Use
  Company Number: None

PATIENT
  Age: 80 Year
  Sex: Female
  Weight: 76 kg

DRUGS (5)
  1. EZETIMIBE [Suspect]
     Active Substance: EZETIMIBE
     Indication: Ill-defined disorder
     Dosage: UNK
     Route: 065
     Dates: start: 20230301
  2. EZETIMIBE [Suspect]
     Active Substance: EZETIMIBE
     Dosage: UNK, OD (TAKE ONE DAILY)
     Route: 065
     Dates: start: 20220811, end: 20230301
  3. DICLOFENAC DIETHYLAMINE [Concomitant]
     Active Substance: DICLOFENAC DIETHYLAMINE
     Indication: Ill-defined disorder
     Dosage: UNK, TID (APPLY 3 TIMES/DAY)
     Route: 065
     Dates: start: 20211007
  4. LANSOPRAZOLE [Concomitant]
     Active Substance: LANSOPRAZOLE
     Indication: Ill-defined disorder
     Dosage: UNK, OD (TAKE ONE ONCE DAILY)
     Route: 065
     Dates: start: 20211007
  5. ACETAMINOPHEN [Concomitant]
     Active Substance: ACETAMINOPHEN
     Indication: Ill-defined disorder
     Dosage: UNK, TAKE 1 OR 2 UP TO 4 TIMES/DAY WHEN REQUIRED
     Route: 065
     Dates: start: 20220214

REACTIONS (1)
  - Diarrhoea [Recovered/Resolved]

NARRATIVE: CASE EVENT DATE: 20230301
